FAERS Safety Report 23186456 (Version 1)
Quarter: 2023Q4

REPORT INFORMATION
  Report Type: Spontaneous
  Country: US (occurrence: US)
  Receive Date: 20231115
  Receipt Date: 20231115
  Transmission Date: 20240110
  Serious: No
  Sender: FDA-Public Use
  Company Number: US-SA-SAC20231108000418

PATIENT
  Sex: Male

DRUGS (1)
  1. DUPIXENT [Suspect]
     Active Substance: DUPILUMAB
     Indication: Dyshidrotic eczema
     Dosage: DOSE OR AMOUNT: 300MG FREQUENCY: EVERY 14 DAYS
     Route: 058
     Dates: start: 202112

REACTIONS (2)
  - Rash [Unknown]
  - Product use in unapproved indication [Unknown]
